FAERS Safety Report 10375650 (Version 2)
Quarter: 2014Q4

REPORT INFORMATION
  Report Type: Spontaneous
  Country: US (occurrence: None)
  Receive Date: 20140804
  Receipt Date: 20141209
  Transmission Date: 20150528
  Serious: Yes (Life-Threatening, Hospitalization, Disabling, Other)
  Sender: FDA-Public Use
  Company Number: 1713747-2014-99928

PATIENT
  Age: 68 Year
  Sex: Female
  Weight: 78.11 kg

DRUGS (6)
  1. FMC 2008K [Concomitant]
  2. COMBISET [Concomitant]
  3. DIALYZER [Concomitant]
  4. CONCENTRATES (NATURALYTE AND GRANUFLO) [Concomitant]
  5. BLOODLINE [Concomitant]
  6. 0.9% SODIUM CHLORIDE INJECTION, USP IN MINI-BAG PLUS CONTAINER [Suspect]
     Active Substance: SODIUM CHLORIDE
     Indication: CHRONIC KIDNEY DISEASE
     Dosage: HEMODIALYSIS
     Dates: start: 20080917

REACTIONS (4)
  - Ventricular tachycardia [None]
  - Cardio-respiratory arrest [None]
  - Haemodialysis complication [None]
  - Sudden cardiac death [None]

NARRATIVE: CASE EVENT DATE: 20080917
